FAERS Safety Report 16634760 (Version 1)
Quarter: 2019Q3

REPORT INFORMATION
  Report Type: Spontaneous
  Country: US (occurrence: US)
  Receive Date: 20190726
  Receipt Date: 20190726
  Transmission Date: 20191004
  Serious: Yes (Other)
  Sender: FDA-Public Use
  Company Number: US-INFO-000817

PATIENT
  Age: 66 Year
  Sex: Female
  Weight: 51.26 kg

DRUGS (4)
  1. SYNTHROID [Concomitant]
     Active Substance: LEVOTHYROXINE SODIUM
     Route: 048
  2. CRESTOR [Concomitant]
     Active Substance: ROSUVASTATIN CALCIUM
     Dosage: AS DIRECTED
     Route: 048
  3. MULTIPLE VITAMIN [Concomitant]
     Active Substance: VITAMINS
     Dosage: AS DIRECTED
     Route: 048
  4. ZOLEDRONIC ACID INJECTION [Suspect]
     Active Substance: ZOLEDRONIC ACID
     Indication: OSTEOPOROSIS
     Dosage: AS DIRECTED
     Route: 041
     Dates: start: 20190624, end: 20190624

REACTIONS (5)
  - Myalgia [Recovered/Resolved]
  - Decreased appetite [Recovered/Resolved]
  - Off label use [Unknown]
  - Nausea [Recovered/Resolved]
  - Headache [Recovered/Resolved]

NARRATIVE: CASE EVENT DATE: 20190624
